FAERS Safety Report 17169675 (Version 1)
Quarter: 2019Q4

REPORT INFORMATION
  Report Type: Report from Study
  Country: GB (occurrence: GB)
  Receive Date: 20191218
  Receipt Date: 20191218
  Transmission Date: 20200122
  Serious: Yes (Other)
  Sender: FDA-Public Use
  Company Number: GB-BAUSCH-BL-2019-000752

PATIENT
  Age: 27 Year
  Sex: Female

DRUGS (3)
  1. PREDNISOLONE. [Suspect]
     Active Substance: PREDNISOLONE
     Indication: PRODUCT USED FOR UNKNOWN INDICATION
     Route: 065
  2. CERTOLIZUMAB PEGOL RA AUTOCLICKS [Suspect]
     Active Substance: CERTOLIZUMAB PEGOL
     Indication: RHEUMATOID ARTHRITIS
     Dosage: 400 MG, EV 2 WEEKS(QOW)
     Route: 058
     Dates: start: 20180618, end: 2018
  3. CERTOLIZUMAB PEGOL RA AUTOCLICKS [Suspect]
     Active Substance: CERTOLIZUMAB PEGOL
     Dosage: 200 MG, EV 2 WEEKS(QOW)
     Route: 058
     Dates: start: 2018

REACTIONS (12)
  - Contusion [Recovered/Resolved]
  - Malaise [Unknown]
  - Rheumatoid arthritis [Unknown]
  - Restlessness [Unknown]
  - Discomfort [Unknown]
  - Insomnia [Unknown]
  - Paraesthesia [Unknown]
  - Pain [Unknown]
  - Therapeutic response shortened [Unknown]
  - Pruritus [Unknown]
  - Miliaria [Unknown]
  - Myalgia [Unknown]

NARRATIVE: CASE EVENT DATE: 2018
